FAERS Safety Report 5198100-4 (Version None)
Quarter: 2006Q4

REPORT INFORMATION
  Report Type: 
  Country: None (occurrence: None)
  Receive Date: 20061228
  Receipt Date: 20061228
  Transmission Date: 20070319
  Serious: Yes (Hospitalization)
  Sender: FDA-Public Use
  Company Number: None

PATIENT
  Sex: Male
  Weight: 76.2 kg

DRUGS (3)
  1. TAXOTERE [Suspect]
     Indication: LIPOSARCOMA
     Dosage: 4 CYCLES, Q15 DAYS IV
     Route: 042
     Dates: start: 20061125, end: 20061212
  2. AVASTIN [Suspect]
     Indication: LIPOSARCOMA
     Dosage: 4 CYCLES, Q15 DAYS IV
     Route: 042
     Dates: start: 20061125, end: 20061212
  3. GEMCITABINE [Suspect]
     Indication: LIPOSARCOMA
     Dosage: 4 CYCLES , Q15 DAYS IV
     Route: 042
     Dates: start: 20061125, end: 20061212

REACTIONS (1)
  - PNEUMOTHORAX [None]
